FAERS Safety Report 5404538-X (Version None)
Quarter: 2007Q3

REPORT INFORMATION
  Report Type: 
  Country: None (occurrence: None)
  Receive Date: 20070802
  Receipt Date: 20070727
  Transmission Date: 20080115
  Serious: Yes (Other)
  Sender: FDA-Public Use
  Company Number: IN-ROXANE LABORATORIES, INC-2007-BP-18222RO

PATIENT
  Age: 40 Year
  Sex: Male

DRUGS (7)
  1. ZIDOVUDINE [Suspect]
     Indication: HIV INFECTION
  2. LAMIVUDINE [Suspect]
     Indication: HIV INFECTION
  3. EFAVIRENZ [Suspect]
     Indication: HIV INFECTION
  4. RIFAMPIN [Suspect]
     Indication: TUBERCULOSIS
  5. ISONIAZID [Suspect]
     Indication: TUBERCULOSIS
  6. PYRAZINAMIDE [Suspect]
     Indication: TUBERCULOSIS
  7. ETHAMBUTOL HYDROCHLORIDE [Suspect]
     Indication: TUBERCULOSIS

REACTIONS (8)
  - BLINDNESS [None]
  - BLINDNESS UNILATERAL [None]
  - COUGH [None]
  - DISORDER OF GLOBE [None]
  - IRIDOCELE [None]
  - LUNG INFILTRATION [None]
  - PAIN [None]
  - UVEITIS [None]
